FAERS Safety Report 7751553-7 (Version None)
Quarter: 2011Q3

REPORT INFORMATION
  Report Type: 
  Country: None (occurrence: None)
  Receive Date: 20110914
  Receipt Date: 20110909
  Transmission Date: 20111222
  Serious: Yes (Death, Hospitalization)
  Sender: FDA-Public Use
  Company Number: PHEH2009US14629

PATIENT
  Sex: Female

DRUGS (4)
  1. GLEEVEC [Suspect]
     Dosage: 100 MG, BID
     Route: 048
     Dates: start: 20091126
  2. GLEEVEC [Suspect]
     Dosage: 200 MG, QD
     Dates: start: 20090101
  3. GLEEVEC [Suspect]
     Indication: CHRONIC MYELOID LEUKAEMIA
     Dosage: 400 MG, QD
     Route: 048
  4. GLEEVEC [Suspect]
     Dosage: 300 MG, QD

REACTIONS (3)
  - DIARRHOEA [None]
  - DEATH [None]
  - DEHYDRATION [None]
